FAERS Safety Report 8290237-6 (Version None)
Quarter: 2012Q2

REPORT INFORMATION
  Report Type: 
  Country: None (occurrence: None)
  Receive Date: 20120417
  Receipt Date: 20120407
  Transmission Date: 20120825
  Serious: Yes (Hospitalization)
  Sender: FDA-Public Use
  Company Number: DE-JNJFOC-20120403943

PATIENT
  Sex: Female
  Weight: 67 kg

DRUGS (4)
  1. CLOZAPINE [Suspect]
     Indication: PRODUCT USED FOR UNKNOWN INDICATION
     Route: 048
     Dates: start: 20120407, end: 20120407
  2. CLOZAPINE [Suspect]
     Route: 048
  3. RISPERDAL [Suspect]
     Indication: PRODUCT USED FOR UNKNOWN INDICATION
     Route: 048
  4. RISPERDAL [Suspect]
     Route: 048
     Dates: start: 20120407, end: 20120407

REACTIONS (1)
  - INCORRECT DOSE ADMINISTERED [None]
